FAERS Safety Report 5519752-2 (Version None)
Quarter: 2007Q4

REPORT INFORMATION
  Report Type: 
  Country: None (occurrence: None)
  Receive Date: 20071116
  Receipt Date: 20070803
  Transmission Date: 20080405
  Serious: No
  Sender: FDA-Public Use
  Company Number: A0668152A

PATIENT
  Age: 75 Year
  Sex: Female

DRUGS (7)
  1. COREG CR [Suspect]
     Indication: HYPERTENSION
     Dosage: 20MG PER DAY
     Route: 048
     Dates: start: 20070701
  2. COREG [Concomitant]
  3. METFORMIN HCL [Concomitant]
  4. UNKNOWN MEDICATION [Concomitant]
  5. GLYBURIDE [Concomitant]
  6. AVITA [Concomitant]
  7. LIPITOR [Concomitant]

REACTIONS (4)
  - DIZZINESS [None]
  - DYSPEPSIA [None]
  - FATIGUE [None]
  - HYPERHIDROSIS [None]
